FAERS Safety Report 9157556 (Version 2)
Quarter: 2013Q1

REPORT INFORMATION
  Report Type: Spontaneous
  Country: US (occurrence: US)
  Receive Date: 20130312
  Receipt Date: 20130328
  Transmission Date: 20140127
  Serious: Yes (Death)
  Sender: FDA-Public Use
  Company Number: PHEH2013US005657

PATIENT
  Age: 69 Year
  Sex: Male

DRUGS (3)
  1. TOBI [Suspect]
     Indication: CYSTIC FIBROSIS
     Dosage: UNK
     Dates: start: 2006
  2. TOBI [Suspect]
     Dosage: 300 MG, BID 28 DAYS, OFF 28 DAYS
     Dates: start: 20120412, end: 20130220
  3. XOLAIR [Concomitant]
     Dosage: 450 MG, Q2W
     Route: 058

REACTIONS (1)
  - Death [Fatal]
